FAERS Safety Report 12115223 (Version 2)
Quarter: 2016Q1

REPORT INFORMATION
  Report Type: Spontaneous
  Country: AR (occurrence: AR)
  Receive Date: 20160225
  Receipt Date: 20160309
  Transmission Date: 20160526
  Serious: Yes (Other)
  Sender: FDA-Public Use
  Company Number: AR-VALIDUS PHARMACEUTICALS LLC-AR-2016VAL000209

PATIENT
  Age: 73 Year
  Sex: Female

DRUGS (1)
  1. TRENTAL [Suspect]
     Active Substance: PENTOXIFYLLINE
     Indication: PRODUCT USED FOR UNKNOWN INDICATION
     Dosage: 400 MG,1 DOSAGE FORM DAILY

REACTIONS (2)
  - Colitis [Recovered/Resolved]
  - Urinary retention [Recovered/Resolved]
